FAERS Safety Report 25637865 (Version 1)
Quarter: 2025Q3

REPORT INFORMATION
  Report Type: Spontaneous
  Country: US (occurrence: US)
  Receive Date: 20250804
  Receipt Date: 20250804
  Transmission Date: 20251021
  Serious: No
  Sender: BIONPHARMA INC.
  Company Number: US-Bion-015163

PATIENT
  Age: 70 Year
  Sex: Female
  Weight: 102.51 kg

DRUGS (1)
  1. NAPROXEN SODIUM [Suspect]
     Active Substance: NAPROXEN SODIUM
     Indication: Analgesic therapy
     Route: 048
     Dates: start: 20250725

REACTIONS (3)
  - Paraesthesia oral [Unknown]
  - Pruritus [Unknown]
  - Expired product administered [Unknown]

NARRATIVE: CASE EVENT DATE: 20250725
